FAERS Safety Report 9559446 (Version 1)
Quarter: 2013Q3

REPORT INFORMATION
  Report Type: Spontaneous
  Country: US (occurrence: None)
  Receive Date: 20130925
  Receipt Date: 20130925
  Transmission Date: 20140515
  Serious: Yes (Hospitalization)
  Sender: FDA-Public Use
  Company Number: FK201304331

PATIENT
  Age: 67 Year
  Sex: Male

DRUGS (4)
  1. IFOSFAMIDE [Suspect]
     Indication: DIFFUSE LARGE B-CELL LYMPHOMA RECURRENT
  2. RITUXIMAB [Concomitant]
  3. ETOPOSIDE (ETOPOSIDE) [Concomitant]
  4. CARBOPLATIN (CARBOPLATIN) [Concomitant]

REACTIONS (7)
  - Encephalopathy [None]
  - Renal failure acute [None]
  - Neurotoxicity [None]
  - Disorientation [None]
  - Coma [None]
  - Nephropathy toxic [None]
  - Continuous haemodiafiltration [None]
